FAERS Safety Report 17060484 (Version 2)
Quarter: 2019Q4

REPORT INFORMATION
  Report Type: Spontaneous
  Country: KZ (occurrence: KZ)
  Receive Date: 20191121
  Receipt Date: 20191223
  Transmission Date: 20200122
  Serious: Yes (Life-Threatening, Hospitalization, Other)
  Sender: FDA-Public Use
  Company Number: KZ-BAYER-2019-206324

PATIENT
  Age: 38 Year
  Sex: Female

DRUGS (1)
  1. YAZ [Suspect]
     Active Substance: DROSPIRENONE\ETHINYL ESTRADIOL
     Dosage: UNK
     Route: 048
     Dates: start: 2018

REACTIONS (15)
  - Pyrexia [Recovering/Resolving]
  - Dyspnoea [Recovering/Resolving]
  - Pulmonary embolism [Recovering/Resolving]
  - Sputum increased [Recovering/Resolving]
  - Urticaria [None]
  - Tachycardia [Recovering/Resolving]
  - Respiratory failure [Recovering/Resolving]
  - Pneumonia [Recovering/Resolving]
  - Dyspnoea exertional [Recovering/Resolving]
  - Chest pain [Recovering/Resolving]
  - Poisoning [Recovering/Resolving]
  - Allergic transfusion reaction [None]
  - Feeling cold [None]
  - Asthenia [Recovering/Resolving]
  - Stress [Recovering/Resolving]

NARRATIVE: CASE EVENT DATE: 201909
